FAERS Safety Report 12474127 (Version 2)
Quarter: 2016Q2

REPORT INFORMATION
  Report Type: Spontaneous
  Country: PL (occurrence: PL)
  Receive Date: 20160616
  Receipt Date: 20160629
  Transmission Date: 20160815
  Serious: Yes (Life-Threatening, Hospitalization, Disabling)
  Sender: FDA-Public Use
  Company Number: PL-AMGEN-POLSP2016075707

PATIENT
  Age: 62 Year
  Sex: Female
  Weight: 70 kg

DRUGS (6)
  1. EUTHYROX [Concomitant]
     Active Substance: LEVOTHYROXINE SODIUM
     Dosage: 100 UG, 1X/DAY
  2. METHOTREXATE [Concomitant]
     Active Substance: METHOTREXATE
     Dosage: 25 MG, WEEKLY
     Route: 048
     Dates: end: 20160309
  3. ALFADIOL [Concomitant]
     Active Substance: ALFACALCIDOL
     Dosage: 1 UG, 1X/DAY 1-0-0
  4. CALPEROS [Concomitant]
     Active Substance: CALCIUM CARBONATE
     Dosage: UNK, 1X/DAY
  5. ACIDUM FOLICUM [Concomitant]
     Active Substance: FOLIC ACID
     Dosage: 15 MG, 2X/WEEK (ON SATURDAY AND SUNDAY)
     Route: 048
     Dates: end: 20160309
  6. ENBREL [Suspect]
     Active Substance: ETANERCEPT
     Indication: PSORIATIC ARTHROPATHY
     Dosage: 50 MG, WEEKLY (EVERY 7 DAYS)
     Route: 058
     Dates: start: 20100922, end: 20160303

REACTIONS (1)
  - Vulval cancer [Recovered/Resolved with Sequelae]

NARRATIVE: CASE EVENT DATE: 20160309
